FAERS Safety Report 7364187-3 (Version None)
Quarter: 2011Q1

REPORT INFORMATION
  Report Type: 
  Country: None (occurrence: None)
  Receive Date: 20110321
  Receipt Date: 20100920
  Transmission Date: 20110831
  Serious: No
  Sender: FDA-Public Use
  Company Number: US-BAYER-201037052NA

PATIENT
  Sex: Female

DRUGS (3)
  1. BACTRIM [Concomitant]
  2. MIRENA [Suspect]
  3. CEPHALEXIN [Concomitant]
     Indication: INFECTION

REACTIONS (1)
  - NO ADVERSE EVENT [None]
